FAERS Safety Report 8161196-1 (Version None)
Quarter: 2012Q1

REPORT INFORMATION
  Report Type: 
  Country: None (occurrence: None)
  Receive Date: 20120224
  Receipt Date: 20120220
  Transmission Date: 20120608
  Serious: No
  Sender: FDA-Public Use
  Company Number: US-PFIZER INC-2009303434

PATIENT
  Sex: Female

DRUGS (10)
  1. SYNTHROID [Concomitant]
     Dosage: UNK
  2. NORVASC [Suspect]
     Dosage: 2.5 MG, 2X/DAY
     Route: 048
  3. MULTI-VITAMINS [Concomitant]
     Dosage: UNK
  4. FLOVENT [Concomitant]
     Dosage: AS NEEDED
  5. ACCUPRIL [Suspect]
     Dosage: 20 MG, 11/2 PILLS, 2X/DAY
  6. XANAX [Concomitant]
     Dosage: UNK
  7. SEREVENT [Concomitant]
     Dosage: UNK, 2X/DAY
  8. NORVASC [Suspect]
     Dosage: 5 MG, 1X/DAY
     Route: 048
  9. ZINC [Concomitant]
     Dosage: UNK
  10. ACETYLSALICYLIC ACID [Concomitant]
     Dosage: 35 MG, UNK

REACTIONS (2)
  - SINUS DISORDER [None]
  - HYPERSENSITIVITY [None]
